FAERS Safety Report 5914527-4 (Version None)
Quarter: 2008Q4

REPORT INFORMATION
  Report Type: 
  Country: None (occurrence: None)
  Receive Date: 20081008
  Receipt Date: 20080923
  Transmission Date: 20090506
  Serious: Yes (Other)
  Sender: FDA-Public Use
  Company Number: 8037105

PATIENT
  Age: 73 Year
  Sex: Female

DRUGS (5)
  1. KEPPRA [Suspect]
     Indication: EPILEPSY
     Dosage: 500 MG 2/D PO
     Route: 048
     Dates: start: 20080101, end: 20080901
  2. INDAPAMIDE [Concomitant]
  3. RANITIDINE [Concomitant]
  4. RELMENIDE [Concomitant]
  5. SIMVASTATIN [Concomitant]

REACTIONS (1)
  - PANCYTOPENIA [None]
